FAERS Safety Report 13657966 (Version 1)
Quarter: 2017Q2

REPORT INFORMATION
  Report Type: Report from Study
  Country: US (occurrence: US)
  Receive Date: 20170616
  Receipt Date: 20170616
  Transmission Date: 20170830
  Serious: Yes (Death)
  Sender: FDA-Public Use
  Company Number: US-TORRENT-00002901

PATIENT
  Age: 60 Year
  Sex: Female

DRUGS (3)
  1. ALPRAZOLAM. [Suspect]
     Active Substance: ALPRAZOLAM
  2. RISPERIDONE. [Suspect]
     Active Substance: RISPERIDONE
  3. ALCOHOL. [Suspect]
     Active Substance: ALCOHOL

REACTIONS (2)
  - Toxicity to various agents [Fatal]
  - Completed suicide [Fatal]
